FAERS Safety Report 13765257 (Version 1)
Quarter: 2017Q3

REPORT INFORMATION
  Report Type: Report from Study
  Country: IT (occurrence: IT)
  Receive Date: 20170718
  Receipt Date: 20170718
  Transmission Date: 20171127
  Serious: Yes (Hospitalization)
  Sender: FDA-Public Use
  Company Number: IT-MYLANLABS-2017M1042543

PATIENT

DRUGS (2)
  1. AZATHIOPRINE. [Suspect]
     Active Substance: AZATHIOPRINE
     Dosage: TITRATED TO THERAPEUTIC DOSE OF: 2-2.5MG/KG
     Route: 065
  2. AZATHIOPRINE. [Suspect]
     Active Substance: AZATHIOPRINE
     Indication: INFLAMMATORY BOWEL DISEASE
     Dosage: STARTING DOSE: 50 MG/DAY FOR FIRST 2W,LATER DOSE WAS TIRATED
     Route: 065

REACTIONS (3)
  - Product use in unapproved indication [Unknown]
  - Acute hepatic failure [Unknown]
  - Hepatitis acute [Unknown]
